FAERS Safety Report 19250966 (Version 1)
Quarter: 2021Q2

REPORT INFORMATION
  Report Type: Spontaneous
  Country: US (occurrence: US)
  Receive Date: 20210513
  Receipt Date: 20210513
  Transmission Date: 20210717
  Serious: No
  Sender: FDA-Public Use
  Company Number: US-AMGEN-USASP2021072419

PATIENT
  Age: 59 Year
  Sex: Female

DRUGS (12)
  1. CONTOUR [ESOMEPRAZOLE SODIUM] [Concomitant]
  2. MYRBETRIQ [Concomitant]
     Active Substance: MIRABEGRON
  3. MICROLET [ETHINYLESTRADIOL;GESTODENE] [Concomitant]
  4. OTEZLA [Suspect]
     Active Substance: APREMILAST
     Indication: PSORIATIC ARTHROPATHY
     Dosage: 30 MILLIGRAM, BID
     Route: 048
     Dates: start: 20210409
  5. SIMVASTATIN. [Concomitant]
     Active Substance: SIMVASTATIN
  6. LOSARTAN/HCT [Concomitant]
     Active Substance: HYDROCHLOROTHIAZIDE\LOSARTAN POTASSIUM
  7. TRAMADOL. [Concomitant]
     Active Substance: TRAMADOL
  8. ESTRADIOL. [Concomitant]
     Active Substance: ESTRADIOL
  9. MELOXICAM. [Concomitant]
     Active Substance: MELOXICAM
  10. METFORMIN [Concomitant]
     Active Substance: METFORMIN HYDROCHLORIDE
  11. VITAMIN D [VITAMIN D NOS] [Concomitant]
     Active Substance: VITAMIN D NOS
  12. FLUOXETINE [Concomitant]
     Active Substance: FLUOXETINE HYDROCHLORIDE

REACTIONS (2)
  - Hypertonic bladder [Not Recovered/Not Resolved]
  - Vaginal infection [Not Recovered/Not Resolved]

NARRATIVE: CASE EVENT DATE: 20210428
